FAERS Safety Report 22047860 (Version 1)
Quarter: 2023Q1

REPORT INFORMATION
  Report Type: Spontaneous
  Country: ES (occurrence: ES)
  Receive Date: 20230301
  Receipt Date: 20230301
  Transmission Date: 20230417
  Serious: Yes (Hospitalization, Other)
  Sender: FDA-Public Use
  Company Number: ES-AEMPS-1334924

PATIENT
  Age: 76 Year
  Sex: Male

DRUGS (8)
  1. FUROSEMIDE [Suspect]
     Active Substance: FUROSEMIDE
     Indication: Cardiac failure
     Dosage: 40 MILLIGRAM (40.0 MG C/24 H, 1615A)
     Route: 048
     Dates: start: 20211228, end: 20220928
  2. SINTROM [Concomitant]
     Active Substance: ACENOCOUMAROL
     Indication: Atrial fibrillation
     Dosage: 4 MILLIGRAM (4.0 MG CE, 20 TABLETS)
     Route: 048
     Dates: start: 20211201
  3. ALLOPURINOL [Concomitant]
     Active Substance: ALLOPURINOL
     Indication: Gout
     Dosage: 300 MILLIGRAM (300.0 MG DE, 30 TABLETS)
     Route: 048
     Dates: start: 20200520
  4. OMEPRAZOLE [Concomitant]
     Active Substance: OMEPRAZOLE
     Indication: Arrhythmia
     Dosage: 20 MILLIGRAM (20.0 MG A-DE, 56 CAPSULES)
     Route: 048
     Dates: start: 20210206
  5. Serc [Concomitant]
     Indication: Musculoskeletal disorder
     Dosage: 8 MILLIGRAM (8.0 MG DECOCE, 60 TABLETS)
     Route: 048
     Dates: start: 20220518
  6. ATORVASTATIN [Concomitant]
     Active Substance: ATORVASTATIN
     Indication: Hyperlipidaemia
     Dosage: 10 MILLIGRAM (10.0 MG CE, 28 TABLETS (PVC-PE-PVDC-AL))
     Route: 048
     Dates: start: 20110919
  7. SOLIFENACIN\TAMSULOSIN [Concomitant]
     Active Substance: SOLIFENACIN\TAMSULOSIN
     Indication: Benign prostatic hyperplasia
     Dosage: 1.0 COMP CE, 30 TABLETS
     Route: 048
     Dates: start: 20220909
  8. LINAGLIPTIN [Concomitant]
     Active Substance: LINAGLIPTIN
     Indication: Atrial fibrillation
     Dosage: 5 MILLIGRAM (5.0 MG CO, 30 TABLETS)
     Route: 048
     Dates: start: 20220720

REACTIONS (1)
  - Acute kidney injury [Recovered/Resolved]

NARRATIVE: CASE EVENT DATE: 20220928
